FAERS Safety Report 8539403-2 (Version None)
Quarter: 2012Q3

REPORT INFORMATION
  Report Type: 
  Country: None (occurrence: None)
  Receive Date: 20120726
  Receipt Date: 20120716
  Transmission Date: 20120928
  Serious: Yes (Hospitalization, Other)
  Sender: FDA-Public Use
  Company Number: US-ELI_LILLY_AND_COMPANY-US201103004215

PATIENT
  Sex: Female

DRUGS (16)
  1. FORTEO [Suspect]
     Dosage: 20 UG, QD
     Route: 058
     Dates: start: 20101001
  2. FORTEO [Suspect]
     Dosage: 20 UG, QD
     Route: 058
     Dates: start: 20101001
  3. ASPIRIN [Concomitant]
     Dosage: UNK
  4. MULTI-VITAMIN [Concomitant]
     Dosage: UNK
  5. LASIX [Concomitant]
     Dosage: UNK
  6. LISINOPRIL [Concomitant]
     Dosage: 2.5 MG, QD
  7. FORTEO [Suspect]
     Indication: OSTEOPOROSIS
     Dosage: 20 UG, QD
     Route: 058
     Dates: start: 20101001
  8. FORTEO [Suspect]
     Dosage: 20 UG, QD
     Route: 058
     Dates: start: 20110326
  9. PRILOSEC [Concomitant]
     Dosage: UNK
  10. GABAPENTIN [Concomitant]
     Dosage: UNK
  11. LOPRESSOR [Concomitant]
     Dosage: UNK
  12. ALBUTEROL [Concomitant]
     Dosage: UNK
  13. SYNTHROID [Concomitant]
     Dosage: UNK
  14. CALCIUM [Concomitant]
     Dosage: UNK
  15. LISINOPRIL [Concomitant]
     Dosage: UNK
  16. LORTAB [Concomitant]
     Dosage: UNK

REACTIONS (11)
  - BLOOD GLUCOSE ABNORMAL [None]
  - PLEURAL EFFUSION [None]
  - PAIN [None]
  - CARDIAC FAILURE CONGESTIVE [None]
  - WEIGHT BEARING DIFFICULTY [None]
  - HIP FRACTURE [None]
  - BLOOD POTASSIUM DECREASED [None]
  - FALL [None]
  - UPPER LIMB FRACTURE [None]
  - HYPOKINESIA [None]
  - LIMB INJURY [None]
